FAERS Safety Report 4308765-4 (Version None)
Quarter: 2004Q1

REPORT INFORMATION
  Report Type: 
  Country: None (occurrence: None)
  Receive Date: 20040227
  Receipt Date: 20040219
  Transmission Date: 20041129
  Serious: Yes (Hospitalization, Disabling)
  Sender: FDA-Public Use
  Company Number: 2004-02-1277

PATIENT
  Age: 18 Year
  Sex: Male
  Weight: 44 kg

DRUGS (12)
  1. GENTAMICIN [Suspect]
     Indication: CYSTIC FIBROSIS
     Dosage: 220 MG Q12H INTRAVENOUS
     Route: 042
  2. IBUPROFEN [Suspect]
     Indication: HEADACHE
     Dosage: 440 MG QD ORAL
     Route: 048
  3. CO-TRIMOXAZOLE INJECTABLE [Suspect]
     Indication: CYSTIC FIBROSIS
     Dosage: 220 MG Q6H INTRAVENOUS
     Route: 042
  4. CO-TRIMOXAZOLE [Suspect]
     Indication: CYSTIC FIBROSIS
     Dosage: ORAL
     Route: 048
  5. PEPTO-BISMOL [Concomitant]
  6. OXACILLIN [Concomitant]
  7. CEFTAZIDIME [Concomitant]
  8. RANITDINE [Concomitant]
  9. LOPERAMIDE HCL [Concomitant]
  10. PANCREATIC ENZYME [Concomitant]
  11. MULTI-VITAMINS [Concomitant]
  12. MYLANTA [Concomitant]

REACTIONS (15)
  - ABDOMINAL PAIN [None]
  - BALANCE DISORDER [None]
  - BLOOD CREATININE INCREASED [None]
  - DIZZINESS [None]
  - DRUG INTERACTION [None]
  - HAEMODIALYSIS [None]
  - HEADACHE [None]
  - LOOSE STOOLS [None]
  - MARKEDLY REDUCED DIETARY INTAKE [None]
  - NAUSEA [None]
  - OLIGURIA [None]
  - POLYURIA [None]
  - RENAL FAILURE ACUTE [None]
  - RENAL TUBULAR NECROSIS [None]
  - VESTIBULAR DISORDER [None]
